FAERS Safety Report 12493726 (Version 2)
Quarter: 2016Q2

REPORT INFORMATION
  Report Type: Spontaneous
  Country: CA (occurrence: CA)
  Receive Date: 20160623
  Receipt Date: 20160624
  Transmission Date: 20160815
  Serious: Yes (Hospitalization)
  Sender: FDA-Public Use
  Company Number: CA-SA-2016SA108373

PATIENT
  Age: 80 Year
  Sex: Male

DRUGS (1)
  1. THYROGEN [Suspect]
     Active Substance: THYROTROPIN ALFA
     Route: 030
     Dates: start: 20150525

REACTIONS (6)
  - Diarrhoea [Unknown]
  - Asthenia [Unknown]
  - General physical health deterioration [Unknown]
  - Vomiting [Unknown]
  - Respiratory symptom [Unknown]
  - Malaise [Unknown]

NARRATIVE: CASE EVENT DATE: 20150525
